FAERS Safety Report 9057268 (Version 1)
Quarter: 2013Q1

REPORT INFORMATION
  Report Type: Report from Study
  Country: JP (occurrence: JP)
  Receive Date: 20130131
  Receipt Date: 20130131
  Transmission Date: 20140127
  Serious: Yes (Other)
  Sender: FDA-Public Use
  Company Number: JP-GLAXOSMITHKLINE-B0860299A

PATIENT
  Age: 59 None
  Sex: Female
  Weight: 61 kg

DRUGS (10)
  1. TYKERB [Suspect]
     Indication: BREAST CANCER
     Route: 048
     Dates: start: 20091016, end: 20091030
  2. TYKERB [Suspect]
     Indication: BREAST CANCER
     Route: 048
     Dates: start: 20091121, end: 20091219
  3. TYKERB [Suspect]
     Indication: BREAST CANCER
     Route: 048
     Dates: start: 20100102, end: 20100206
  4. TYKERB [Suspect]
     Indication: BREAST CANCER
     Route: 048
     Dates: start: 20100213
  5. XELODA [Suspect]
     Route: 048
     Dates: start: 20091016, end: 20091030
  6. XELODA [Suspect]
     Route: 048
     Dates: start: 20091121, end: 20091218
  7. XELODA [Suspect]
     Route: 048
     Dates: start: 20100102, end: 20100320
  8. NORVASC [Concomitant]
     Indication: HYPERTENSION
     Route: 048
  9. METHYCOBAL [Concomitant]
     Indication: HYPOAESTHESIA
     Route: 048
  10. HICEE [Concomitant]
     Indication: PIGMENTATION DISORDER
     Route: 048

REACTIONS (5)
  - Cellulitis [Recovering/Resolving]
  - Diarrhoea [Recovered/Resolved]
  - Rash [Recovered/Resolved]
  - Palmar-plantar erythrodysaesthesia syndrome [Recovering/Resolving]
  - Stomatitis [Recovered/Resolved]
